FAERS Safety Report 9098322 (Version 3)
Quarter: 2013Q2

REPORT INFORMATION
  Report Type: Report from Study
  Country: US (occurrence: US)
  Receive Date: 20130213
  Receipt Date: 20130426
  Transmission Date: 20140414
  Serious: Yes (Death, Other)
  Sender: FDA-Public Use
  Company Number: PHEH2013US003493

PATIENT
  Sex: Male
  Weight: 60 kg

DRUGS (2)
  1. GLEEVEC [Suspect]
     Indication: CHRONIC MYELOID LEUKAEMIA
     Dosage: 400 MG, DAILY
     Route: 048
     Dates: start: 20100128
  2. SERTRALINE [Concomitant]
     Dosage: UNK UKN, UNK

REACTIONS (2)
  - Cardiogenic shock [Fatal]
  - Acute myocardial infarction [Unknown]
